FAERS Safety Report 15579393 (Version 1)
Quarter: 2018Q4

REPORT INFORMATION
  Report Type: Spontaneous
  Country: IL (occurrence: IL)
  Receive Date: 20181102
  Receipt Date: 20181102
  Transmission Date: 20190205
  Serious: Yes (Life-Threatening, Hospitalization)
  Sender: FDA-Public Use
  Company Number: IL-SAKK-2018SA297673AA

PATIENT
  Age: 61 Year
  Sex: Male

DRUGS (2)
  1. SOLIQUA 100/33 [Suspect]
     Active Substance: INSULIN GLARGINE\LIXISENATIDE
     Dosage: UNK, UNK
     Route: 058
  2. INFLUENZA VACCINE [Concomitant]
     Active Substance: INFLUENZA VIRUS VACCINE

REACTIONS (5)
  - Dyspnoea [Unknown]
  - Pruritus generalised [Unknown]
  - Loss of consciousness [Unknown]
  - Anaphylactic shock [Recovered/Resolved]
  - Laryngitis [Unknown]
